FAERS Safety Report 22384761 (Version 1)
Quarter: 2023Q2

REPORT INFORMATION
  Report Type: Spontaneous
  Country: US (occurrence: US)
  Receive Date: 20230530
  Receipt Date: 20230530
  Transmission Date: 20230721
  Serious: No
  Sender: FDA-Public Use
  Company Number: US-PERRIGO-23US004726

PATIENT
  Age: 70 Year
  Sex: Male
  Weight: 95.238 kg

DRUGS (4)
  1. MINOXIDIL [Suspect]
     Active Substance: MINOXIDIL
     Indication: Alopecia
     Dosage: 0.5 CAPFUL, BID
     Route: 061
     Dates: start: 202208, end: 20230212
  2. MINOXIDIL [Suspect]
     Active Substance: MINOXIDIL
     Dosage: LITTLE MORE THAN 0.5 CAPFUL, BID
     Route: 061
     Dates: start: 20230213
  3. LEVODOPA [Concomitant]
     Active Substance: LEVODOPA
     Indication: Cerebral disorder
     Dosage: UNK
     Route: 065
  4. VIMPAT [Concomitant]
     Active Substance: LACOSAMIDE
     Indication: Cerebral disorder
     Dosage: UNK
     Route: 065

REACTIONS (4)
  - Application site pruritus [Recovering/Resolving]
  - Wrong technique in product usage process [Not Recovered/Not Resolved]
  - Product administered at inappropriate site [Not Recovered/Not Resolved]
  - Incorrect dose administered [Not Recovered/Not Resolved]

NARRATIVE: CASE EVENT DATE: 20230213
